FAERS Safety Report 9228512 (Version 1)
Quarter: 2013Q2

REPORT INFORMATION
  Report Type: Spontaneous
  Country: FR (occurrence: FR)
  Receive Date: 20130412
  Receipt Date: 20130412
  Transmission Date: 20140414
  Serious: Yes (Hospitalization)
  Sender: FDA-Public Use
  Company Number: FR-ROCHE-1212168

PATIENT
  Age: 15 Year
  Sex: Male

DRUGS (6)
  1. RIVOTRIL [Suspect]
     Indication: EPILEPSY
     Route: 065
     Dates: start: 20130311
  2. GARDENAL [Suspect]
     Indication: EPILEPSY
     Route: 065
     Dates: start: 20130313, end: 20130326
  3. DEPAKINE [Suspect]
     Indication: EPILEPSY
     Route: 065
  4. TEGRETOL [Suspect]
     Indication: EPILEPSY
     Route: 065
  5. KEPPRA [Suspect]
     Indication: EPILEPSY
     Route: 065
  6. LAMICTAL [Suspect]
     Indication: EPILEPSY
     Route: 065

REACTIONS (2)
  - Rash pustular [Not Recovered/Not Resolved]
  - Generalised erythema [Not Recovered/Not Resolved]
